FAERS Safety Report 19235928 (Version 2)
Quarter: 2021Q2

REPORT INFORMATION
  Report Type: Spontaneous
  Country: US (occurrence: US)
  Receive Date: 20210510
  Receipt Date: 20210612
  Transmission Date: 20210717
  Serious: No
  Sender: FDA-Public Use
  Company Number: US-TEVA-2021-US-1907603

PATIENT
  Age: 46 Year

DRUGS (1)
  1. BUDESONIDE TEVA [Suspect]
     Active Substance: BUDESONIDE
     Route: 065
     Dates: start: 20210221, end: 20210223

REACTIONS (3)
  - Pruritus [Recovered/Resolved]
  - Erythema [Recovered/Resolved]
  - Drug hypersensitivity [Unknown]

NARRATIVE: CASE EVENT DATE: 202102
